FAERS Safety Report 20602046 (Version 1)
Quarter: 2022Q1

REPORT INFORMATION
  Report Type: Spontaneous
  Country: TR (occurrence: TR)
  Receive Date: 20220316
  Receipt Date: 20220316
  Transmission Date: 20220424
  Serious: Yes (Life-Threatening, Hospitalization, Other)
  Sender: FDA-Public Use
  Company Number: TR-MLMSERVICE-20220307-3416525-1

PATIENT
  Age: 70 Year
  Sex: Male

DRUGS (5)
  1. TACROLIMUS [Suspect]
     Active Substance: TACROLIMUS
     Indication: Immunosuppressant drug therapy
  2. PREDNISOLONE [Concomitant]
     Active Substance: PREDNISOLONE
     Indication: Immunosuppressant drug therapy
  3. MYCOPHENOLATE MOFETIL [Concomitant]
     Active Substance: MYCOPHENOLATE MOFETIL
     Indication: Immunosuppressant drug therapy
  4. URSODIOL [Concomitant]
     Active Substance: URSODIOL
  5. INSULIN ASPART [Concomitant]
     Active Substance: INSULIN ASPART

REACTIONS (2)
  - Hyponatraemic encephalopathy [Recovered/Resolved]
  - Pseudostroke [Recovered/Resolved]
